FAERS Safety Report 11389635 (Version 1)
Quarter: 2015Q3

REPORT INFORMATION
  Report Type: Spontaneous
  Country: US (occurrence: US)
  Receive Date: 20150817
  Receipt Date: 20150817
  Transmission Date: 20151125
  Serious: Yes (Hospitalization)
  Sender: FDA-Public Use
  Company Number: US-CELGENEUS-USA-2014112528

PATIENT
  Age: 62 Year
  Sex: Male
  Weight: 93.52 kg

DRUGS (1)
  1. THALOMID [Suspect]
     Active Substance: THALIDOMIDE
     Indication: PLASMA CELL MYELOMA
     Route: 048
     Dates: start: 20091223

REACTIONS (2)
  - Chest pain [Unknown]
  - Renal failure [Unknown]

NARRATIVE: CASE EVENT DATE: 20141103
